FAERS Safety Report 10669530 (Version 1)
Quarter: 2014Q4

REPORT INFORMATION
  Report Type: Spontaneous
  Country: US (occurrence: US)
  Receive Date: 20141222
  Receipt Date: 20141222
  Transmission Date: 20150529
  Serious: No
  Sender: FDA-Public Use
  Company Number: US-BAUSCH-SYM-2014-20373

PATIENT
  Sex: Female
  Weight: 58.11 kg

DRUGS (3)
  1. XENAZINE [Suspect]
     Active Substance: TETRABENAZINE
     Dosage: 1 TABLET, TWICE DAILY
     Route: 048
     Dates: start: 201311
  2. XENAZINE [Suspect]
     Active Substance: TETRABENAZINE
     Indication: HUNTINGTON^S DISEASE
     Dosage: 1 TABLET, ONCE DAILY
     Route: 048
     Dates: start: 20121119
  3. XENAZINE [Suspect]
     Active Substance: TETRABENAZINE
     Dosage: 1 TABLET, TWICE DAILY
     Route: 048
     Dates: start: 201212, end: 201310

REACTIONS (4)
  - Eyelid function disorder [Not Recovered/Not Resolved]
  - Intestinal mass [Unknown]
  - Cystitis [Unknown]
  - Nausea [Recovered/Resolved]
